FAERS Safety Report 17944466 (Version 2)
Quarter: 2020Q3

REPORT INFORMATION
  Report Type: Spontaneous
  Country: US (occurrence: US)
  Receive Date: 20200625
  Receipt Date: 20200720
  Transmission Date: 20201103
  Serious: Yes (Other)
  Sender: FDA-Public Use
  Company Number: US-HORIZON-DUE-0185-2020

PATIENT
  Age: 67 Year
  Sex: Female

DRUGS (1)
  1. DUEXIS [Suspect]
     Active Substance: FAMOTIDINE\IBUPROFEN
     Indication: INJURY
     Dosage: ONE OR TWICE A DAY TO THREE TIMES A DAY
     Dates: start: 2012

REACTIONS (4)
  - Fall [Unknown]
  - Off label use [Unknown]
  - Spinal fracture [Unknown]
  - Off label use [Unknown]

NARRATIVE: CASE EVENT DATE: 2012
